FAERS Safety Report 22716962 (Version 3)
Quarter: 2024Q3

REPORT INFORMATION
  Report Type: Report from Study
  Country: CA (occurrence: CA)
  Receive Date: 20230718
  Receipt Date: 20240715
  Transmission Date: 20241016
  Serious: Yes (Hospitalization)
  Sender: VIIV
  Company Number: CA-VIIV HEALTHCARE LIMITED-CA2023095308

PATIENT

DRUGS (4)
  1. CABOTEGRAVIR\RILPIVIRINE [Suspect]
     Active Substance: CABOTEGRAVIR\RILPIVIRINE
     Indication: HIV infection
     Dosage: UNK UNK, Q2M, 600MG/3ML) CABOTEGRAVIR INJECTION AND (900MG/3ML) RILPIVIRINE INJECTION)
     Route: 030
     Dates: start: 20230608
  2. CABOTEGRAVIR\RILPIVIRINE [Suspect]
     Active Substance: CABOTEGRAVIR\RILPIVIRINE
  3. CABOTEGRAVIR\RILPIVIRINE [Suspect]
     Active Substance: CABOTEGRAVIR\RILPIVIRINE
  4. CABOTEGRAVIR\RILPIVIRINE [Suspect]
     Active Substance: CABOTEGRAVIR\RILPIVIRINE
     Indication: HIV infection
     Dosage: UNK UNK, Q2M, CABOTEGRAVIR 600MG/3ML RILPIVIRINE 900MG/3ML
     Route: 030

REACTIONS (4)
  - Injection site pain [Recovered/Resolved]
  - Gait disturbance [Recovered/Resolved]
  - Diarrhoea [Recovered/Resolved]
  - Weight decreased [Unknown]

NARRATIVE: CASE EVENT DATE: 20230705
